FAERS Safety Report 25368965 (Version 2)
Quarter: 2025Q3

REPORT INFORMATION
  Report Type: Spontaneous
  Country: AU (occurrence: AU)
  Receive Date: 20250528
  Receipt Date: 20250718
  Transmission Date: 20251020
  Serious: Yes (Other)
  Sender: NOVARTIS
  Company Number: AU-002147023-NVSC2025AU082553

PATIENT
  Sex: Male

DRUGS (1)
  1. IPTACOPAN [Suspect]
     Active Substance: IPTACOPAN
     Indication: Paroxysmal nocturnal haemoglobinuria
     Route: 065
     Dates: start: 202504

REACTIONS (3)
  - Neutropenia [Not Recovered/Not Resolved]
  - Bone marrow failure [Unknown]
  - Aplastic anaemia [Unknown]
